FAERS Safety Report 5600967-X (Version None)
Quarter: 2008Q1

REPORT INFORMATION
  Report Type: 
  Country: None (occurrence: None)
  Receive Date: 20080124
  Receipt Date: 20080122
  Transmission Date: 20080703
  Serious: Yes (Death)
  Sender: FDA-Public Use
  Company Number: PHFR2007GB03385

PATIENT
  Age: 46 Year
  Sex: Female
  Weight: 66 kg

DRUGS (16)
  1. CYCLOSPORINE [Suspect]
     Indication: PROPHYLAXIS AGAINST TRANSPLANT REJECTION
     Route: 048
     Dates: start: 20070809, end: 20070924
  2. CO-TRIMOXAZOLE [Concomitant]
     Dosage: 960MG
     Route: 065
     Dates: start: 20070815
  3. ERYTHROMYCIN [Concomitant]
     Dosage: 250 MG, BID
     Route: 065
     Dates: start: 20070729, end: 20070815
  4. CLEXANE [Concomitant]
     Dosage: 100MG
     Route: 058
     Dates: start: 20070727, end: 20070805
  5. ALLOPURINOL [Concomitant]
     Dosage: 300MG
     Route: 048
     Dates: start: 20070727, end: 20070801
  6. CIPROFLOXACIN [Concomitant]
     Indication: PROPHYLAXIS
     Dosage: 250 MG, BID
     Route: 048
     Dates: start: 20070728, end: 20070815
  7. METHOTREXATE [Concomitant]
     Route: 042
     Dates: start: 20070803, end: 20070813
  8. NORETHISTERONE [Concomitant]
     Dosage: 10 MG, TID
     Route: 065
     Dates: start: 20070728, end: 20070815
  9. ONDANSETRON [Concomitant]
     Dosage: 8 MG, BID
     Route: 065
     Dates: start: 20070729, end: 20070801
  10. FOLINIC ACID [Concomitant]
     Route: 042
     Dates: start: 20070803, end: 20070813
  11. COLISTIN SULFATE [Concomitant]
     Indication: PROPHYLAXIS
     Dosage: 1.5 MG, TID
     Route: 048
     Dates: start: 20070728, end: 20070815
  12. CYCLOPHOSPHAMIDE [Concomitant]
     Dosage: 4080MG
     Route: 065
     Dates: start: 20070729, end: 20070730
  13. DEXAMETHASONE TAB [Concomitant]
     Dosage: 2MG
     Route: 065
     Dates: start: 20070729, end: 20070801
  14. FILGRASTIM [Concomitant]
     Dosage: 300UG
     Route: 065
     Dates: start: 20070809, end: 20070815
  15. FLUCONAZOLE [Concomitant]
     Indication: PROPHYLAXIS
     Dosage: 50 MG, QD
     Route: 048
     Dates: start: 20070728, end: 20070815
  16. ACYCLOVIR [Concomitant]
     Indication: PROPHYLAXIS
     Dosage: 680 MG, TID
     Route: 042
     Dates: start: 20070728, end: 20070815

REACTIONS (1)
  - THROMBOTIC THROMBOCYTOPENIC PURPURA [None]
